FAERS Safety Report 8444942-9 (Version None)
Quarter: 2012Q2

REPORT INFORMATION
  Report Type: 
  Country: None (occurrence: None)
  Receive Date: 20120521
  Receipt Date: 20120409
  Transmission Date: 20120825
  Serious: Yes (Hospitalization, Other)
  Sender: FDA-Public Use
  Company Number: 2011028627

PATIENT
  Age: 64 Year
  Sex: Female
  Weight: 83.4619 kg

DRUGS (29)
  1. MUCINEX [Concomitant]
  2. CLONAZEPAM [Concomitant]
  3. DYAZIDE [Concomitant]
  4. LEVAQUIN [Concomitant]
  5. PREDNISOLONE AC (METHYLPREDNISOLONE ACETATE) [Concomitant]
  6. TRAMADOL HCL [Concomitant]
  7. SINGULAIR [Concomitant]
  8. PREDNISONE TAB [Concomitant]
  9. FUROSEMIDE [Concomitant]
  10. LISINOPRIL [Concomitant]
  11. CALCIUM CARBONATE [Concomitant]
  12. NASONEX [Concomitant]
  13. ESTRACE [Concomitant]
  14. AZITHROMYCIN [Concomitant]
  15. MULTIVITAMIN (ACCOMIN MULTIVITAMIN) [Concomitant]
  16. HIZENTRA [Suspect]
  17. HIZENTRA [Suspect]
  18. ADVAIR DISKUS 100/50 [Concomitant]
  19. ZOLPIDEM [Concomitant]
  20. ZYRTEC [Concomitant]
  21. HYDROCODONE BITARTRATE [Concomitant]
  22. LEVOTHYROXINE SODIUM [Concomitant]
  23. NEXIUM [Concomitant]
  24. CYMBALTA [Concomitant]
  25. PROVENTIL [Concomitant]
  26. GLYBURIDE [Concomitant]
  27. ZETIA [Concomitant]
  28. HIZENTRA [Suspect]
     Indication: IMMUNODEFICIENCY COMMON VARIABLE
     Dosage: SEE IMAGE
     Dates: start: 20110127
  29. HIZENTRA [Suspect]

REACTIONS (6)
  - DEEP VEIN THROMBOSIS [None]
  - EAR INFECTION [None]
  - BRONCHITIS [None]
  - EYE INFECTION [None]
  - RESPIRATORY TRACT INFECTION [None]
  - PHARYNGITIS [None]
